FAERS Safety Report 15961822 (Version 1)
Quarter: 2019Q1

REPORT INFORMATION
  Report Type: Spontaneous
  Country: US (occurrence: US)
  Receive Date: 20190214
  Receipt Date: 20190214
  Transmission Date: 20190417
  Serious: Yes (Death, Other)
  Sender: FDA-Public Use
  Company Number: US-PFIZER INC-2019059169

PATIENT
  Age: 63 Year
  Sex: Female

DRUGS (10)
  1. ADRIAMYCIN [Suspect]
     Active Substance: DOXORUBICIN HYDROCHLORIDE
     Dosage: 40 MG/M2, CYCLIC, ON DAY 1
     Route: 042
     Dates: end: 197906
  2. CYCLOPHOSPHAMIDE. [Suspect]
     Active Substance: CYCLOPHOSPHAMIDE
     Indication: SMALL CELL LUNG CANCER
     Dosage: 2400 MG/M2, CYCLIC, REPEATED ON DAY 28
     Route: 042
     Dates: start: 1977
  3. METHOTREXATE SODIUM. [Suspect]
     Active Substance: METHOTREXATE SODIUM
     Indication: SMALL CELL LUNG CANCER
     Dosage: 30 MG/M2, CYCLIC, ON DAY 56, REPEATED ON DAY 70
     Route: 042
     Dates: start: 1977, end: 197906
  4. CYCLOPHOSPHAMIDE. [Suspect]
     Active Substance: CYCLOPHOSPHAMIDE
     Dosage: 1000 MG/M2, CYCLIC, DAY 1
     Route: 042
     Dates: end: 197906
  5. VP 16-213 [Suspect]
     Active Substance: ETOPOSIDE
     Indication: SMALL CELL LUNG CANCER
     Dosage: 125 MG/M2, CYCLIC, ON DAYS 1, 3, AND 5, REPEATED ON DAY 28
     Route: 042
     Dates: start: 197704
  6. ADRIAMYCIN [Suspect]
     Active Substance: DOXORUBICIN HYDROCHLORIDE
     Indication: SMALL CELL LUNG CANCER
     Dosage: 40 MG/M2, CYCLIC, ON DAY 1, REPEATED ON DAY 28
     Route: 042
     Dates: start: 197704
  7. VINCRISTINE SULFATE. [Suspect]
     Active Substance: VINCRISTINE SULFATE
     Indication: SMALL CELL LUNG CANCER
     Dosage: 1.4 MG/M2, CYCLIC, MAXIMUM DOSE, 2 MG, REPEATED ON DAY 70
     Route: 042
     Dates: start: 1977, end: 197906
  8. VP 16-213 [Suspect]
     Active Substance: ETOPOSIDE
     Dosage: 100 MG/M2, CYCLIC, ON DAYS 1, 3, AND 5 (CAV)
     Route: 042
     Dates: end: 197906
  9. PROCARBAZINE [Suspect]
     Active Substance: PROCARBAZINE
     Indication: SMALL CELL LUNG CANCER
     Dosage: 100 MG/M2, DAILY, FROM DAY 56 TO DAY 65, SECOND COURSE OF BOMP WAS STARTED ON DAY 84
     Route: 048
     Dates: start: 1977, end: 197906
  10. BICNU [Suspect]
     Active Substance: CARMUSTINE
     Indication: SMALL CELL LUNG CANCER
     Dosage: 60 MG/M2, CYCLIC, ON DAY 56
     Route: 042
     Dates: start: 1977, end: 197906

REACTIONS (2)
  - Second primary malignancy [Fatal]
  - Acute myeloid leukaemia [Fatal]

NARRATIVE: CASE EVENT DATE: 1980
